FAERS Safety Report 23676447 (Version 3)
Quarter: 2024Q2

REPORT INFORMATION
  Report Type: Report from Study
  Country: CA (occurrence: CA)
  Receive Date: 20240327
  Receipt Date: 20240410
  Transmission Date: 20240715
  Serious: Yes (Other)
  Sender: FDA-Public Use
  Company Number: CA-ABBVIE-5691742

PATIENT
  Sex: Female

DRUGS (1)
  1. RINVOQ [Suspect]
     Active Substance: UPADACITINIB
     Indication: Rheumatoid arthritis
     Dosage: FORM STRENGTH: 15 MILLIGRAMS
     Route: 048
     Dates: start: 20200603, end: 2023

REACTIONS (5)
  - Lung transplant [Unknown]
  - Illness [Unknown]
  - Weight decreased [Unknown]
  - Gait inability [Unknown]
  - Speech disorder [Unknown]

NARRATIVE: CASE EVENT DATE: 20231001
